FAERS Safety Report 25288860 (Version 1)
Quarter: 2025Q2

REPORT INFORMATION
  Report Type: Spontaneous
  Country: JP (occurrence: JP)
  Receive Date: 20250509
  Receipt Date: 20250509
  Transmission Date: 20250717
  Serious: Yes (Hospitalization)
  Sender: MERCK SHARP & DOHME LLC
  Company Number: JP-009507513-2281883

PATIENT
  Age: 59 Year
  Sex: Male

DRUGS (1)
  1. PEMBROLIZUMAB [Suspect]
     Active Substance: PEMBROLIZUMAB
     Indication: Non-small cell lung cancer
     Dosage: 400 MG EVERY SIX WEEK (3QW) FIRST-LINE TREATMENT
     Dates: start: 202211

REACTIONS (2)
  - Tuberculous pleurisy [Recovering/Resolving]
  - Immune-mediated pericarditis [Recovering/Resolving]

NARRATIVE: CASE EVENT DATE: 20221201
